FAERS Safety Report 11239166 (Version 1)
Quarter: 2015Q3

REPORT INFORMATION
  Report Type: Spontaneous
  Country: US (occurrence: None)
  Receive Date: 20150701
  Receipt Date: 20150701
  Transmission Date: 20151125
  Serious: Yes (Death)
  Sender: FDA-Public Use
  Company Number: None

PATIENT
  Age: 85 Year
  Sex: Male
  Weight: 77.3 kg

DRUGS (1)
  1. DABIGATRAN [Suspect]
     Active Substance: DABIGATRAN
     Indication: ATRIAL FIBRILLATION
     Route: 048
     Dates: start: 20121025, end: 20130125

REACTIONS (9)
  - Dyspnoea [None]
  - Pulmonary haemorrhage [None]
  - Haemorrhage [None]
  - Tachycardia [None]
  - Pyrexia [None]
  - Diarrhoea [None]
  - Hypoxia [None]
  - Haemoptysis [None]
  - Acute kidney injury [None]

NARRATIVE: CASE EVENT DATE: 20130125
